FAERS Safety Report 6337999-2 (Version None)
Quarter: 2009Q3

REPORT INFORMATION
  Report Type: 
  Country: None (occurrence: None)
  Receive Date: 20090902
  Receipt Date: 20090820
  Transmission Date: 20100115
  Serious: Yes (Other)
  Sender: FDA-Public Use
  Company Number: SE-PFIZER INC-2009257886

PATIENT
  Age: 59 Year

DRUGS (2)
  1. LYRICA [Suspect]
     Indication: PAIN
     Dosage: 75 MG TWICE DAILY UP TO THREE TIMES DAILY
     Route: 065
     Dates: start: 20070101
  2. ALVEDON [Concomitant]
     Dosage: UNK

REACTIONS (5)
  - CATARACT [None]
  - DRY EYE [None]
  - EYE IRRITATION [None]
  - EYE PAIN [None]
  - VISION BLURRED [None]
